FAERS Safety Report 11268277 (Version 1)
Quarter: 2015Q3

REPORT INFORMATION
  Report Type: Report from Study
  Country: US (occurrence: US)
  Receive Date: 20150714
  Receipt Date: 20150714
  Transmission Date: 20151125
  Serious: Yes (Hospitalization)
  Sender: FDA-Public Use
  Company Number: US-MERCK-1507USA004700

PATIENT
  Age: 59 Year

DRUGS (2)
  1. DECADRON [Suspect]
     Active Substance: DEXAMETHASONE
     Indication: PLASMA CELL MYELOMA
     Dosage: 40 MG, QW (ROUTE REPORTED AS ORAL)
     Dates: start: 20140529, end: 20150406
  2. CARFILZOMIB [Suspect]
     Active Substance: CARFILZOMIB
     Indication: PLASMA CELL MYELOMA
     Dosage: 37 MG, CYCLICAL (3 WEEK CYCLE) ON DAYS 1,2,8,9,15,16
     Route: 042
     Dates: start: 20140529, end: 20150317

REACTIONS (3)
  - Anaemia [Unknown]
  - Pancytopenia [Unknown]
  - Thrombocytopenia [Unknown]

NARRATIVE: CASE EVENT DATE: 20150331
